FAERS Safety Report 13370681 (Version 1)
Quarter: 2017Q1

REPORT INFORMATION
  Report Type: Spontaneous
  Country: US (occurrence: US)
  Receive Date: 20170324
  Receipt Date: 20170324
  Transmission Date: 20170429
  Serious: No
  Sender: FDA-Public Use
  Company Number: US-ROCHE-1049976

PATIENT
  Sex: Male

DRUGS (8)
  1. PROAIR HFA [Concomitant]
     Active Substance: ALBUTEROL SULFATE
     Indication: DYSPNOEA
     Dosage: INHALATION, STARTED BEFORE OMALIZUMAB
     Route: 065
     Dates: start: 2011
  2. CYMBALTA [Concomitant]
     Active Substance: DULOXETINE HYDROCHLORIDE
     Indication: DEPRESSION
     Dosage: STARTED BEFORE OMALIZUMAB
     Route: 048
  3. VITAMIN D [Concomitant]
     Active Substance: CHOLECALCIFEROL
     Dosage: 50000U
     Route: 048
     Dates: start: 201202
  4. PREVACID [Concomitant]
     Active Substance: LANSOPRAZOLE
  5. XOLAIR [Suspect]
     Active Substance: OMALIZUMAB
     Indication: ASTHMA
     Route: 065
     Dates: start: 20111107
  6. SYMBICORT [Concomitant]
     Active Substance: BUDESONIDE\FORMOTEROL FUMARATE DIHYDRATE
     Indication: ASTHMA
     Dosage: INHALATION, AS PER REQUIRED,QD,STARTED BEFORE OMALIZUMAB
     Route: 065
     Dates: start: 2011
  7. CLONIDINE. [Concomitant]
     Active Substance: CLONIDINE
     Dosage: STARTED BEFORE OMALIZUMAB
     Route: 048
  8. FLONASE [Concomitant]
     Active Substance: FLUTICASONE PROPIONATE
     Indication: NASAL CONGESTION
     Dosage: DAILY, STARTED BEFORE OMALIZUMAB
     Route: 045

REACTIONS (1)
  - Fatigue [Unknown]
